FAERS Safety Report 8788553 (Version 1)
Quarter: 2012Q4

REPORT INFORMATION
  Report Type: 
  Country: US (occurrence: US)
  Receive Date: 20120914
  Receipt Date: 20120914
  Transmission Date: 20130627
  Serious: No
  Sender: FDA-Public Use
  Company Number: US-VERTEX PHARMACEUTICAL INC.-2012-019822

PATIENT
  Age: 47 Year
  Sex: Female
  Weight: 74.38 kg

DRUGS (8)
  1. VX-950 [Suspect]
     Indication: HEPATITIS C
     Dosage: 750 mg, tid
     Route: 048
  2. PEGASYS [Concomitant]
     Indication: HEPATITIS C
     Dosage: 180 ?g, UNK
  3. RIBAVIRIN [Concomitant]
     Dosage: 200 mg, UNK
  4. MELOXICAM [Concomitant]
     Dosage: 7.5 UNK, UNK
  5. ALBUTEROL                          /00139501/ [Concomitant]
     Dosage: 1.25 mg, UNK
  6. ZANTAC [Concomitant]
     Dosage: 75 mg, UNK
  7. PULMICORT FLEXHALER [Suspect]
     Dosage: 200 ?g, UNK
  8. VITAMINS [Suspect]

REACTIONS (1)
  - Alopecia [Unknown]
